FAERS Safety Report 14164417 (Version 1)
Quarter: 2017Q4

REPORT INFORMATION
  Report Type: Spontaneous
  Country: US (occurrence: US)
  Receive Date: 20171107
  Receipt Date: 20171107
  Transmission Date: 20180321
  Serious: Yes (Hospitalization, Other)
  Sender: FDA-Public Use
  Company Number: US-AUROBINDO-AUR-APL-2017-43211

PATIENT
  Age: 38 Year
  Sex: Female

DRUGS (2)
  1. LOPERAMIDE [Suspect]
     Active Substance: LOPERAMIDE
     Indication: PRODUCT USED FOR UNKNOWN INDICATION
     Dosage: 2 MG, UNK
  2. HYDROCODONE [Concomitant]
     Active Substance: HYDROCODONE
     Indication: COLITIS ULCERATIVE

REACTIONS (25)
  - Dizziness [Recovering/Resolving]
  - Decreased appetite [Recovering/Resolving]
  - Restlessness [Recovering/Resolving]
  - Euphoric mood [Unknown]
  - Constipation [Recovering/Resolving]
  - Nausea [Recovering/Resolving]
  - Hyperhidrosis [Recovering/Resolving]
  - Vomiting [Recovering/Resolving]
  - Dysphoria [Recovering/Resolving]
  - Tachycardia [Recovering/Resolving]
  - Drug withdrawal syndrome [Recovering/Resolving]
  - Feeling abnormal [Recovering/Resolving]
  - Mydriasis [Recovering/Resolving]
  - Tachyarrhythmia [Unknown]
  - Overdose [Recovering/Resolving]
  - Irritability [Recovering/Resolving]
  - Muscle spasms [Recovering/Resolving]
  - Drug use disorder [Recovering/Resolving]
  - Drug abuse [Recovering/Resolving]
  - Drug tolerance [Recovering/Resolving]
  - Insomnia [Recovering/Resolving]
  - Tremor [Recovering/Resolving]
  - Malaise [Recovering/Resolving]
  - Anxiety [Recovering/Resolving]
  - Abdominal pain [Recovering/Resolving]
